FAERS Safety Report 8576582-5 (Version None)
Quarter: 2012Q3

REPORT INFORMATION
  Report Type: 
  Country: None (occurrence: None)
  Receive Date: 20120807
  Receipt Date: 20120723
  Transmission Date: 20120928
  Serious: Yes (Other)
  Sender: FDA-Public Use
  Company Number: PL-ROCHE-1094314

PATIENT

DRUGS (1)
  1. AVASTIN [Suspect]
     Indication: GLAUCOMA
     Dosage: 0.1 ML (1.25 MG)
     Route: 057

REACTIONS (2)
  - CONJUNCTIVAL DISORDER [None]
  - TENON'S CYST [None]
